FAERS Safety Report 8331069 (Version 2)
Quarter: 2013Q2

REPORT INFORMATION
  Report Type: Spontaneous
  Country: GB (occurrence: GB)
  Receive Date: 20120111
  Receipt Date: 20130627
  Transmission Date: 20140414
  Serious: Yes (Other)
  Sender: FDA-Public Use
  Company Number: GB-PFIZER INC-2012005466

PATIENT
  Age: 74 Year
  Sex: Female
  Weight: 60.33 kg

DRUGS (11)
  1. AMLODIPINE BESILATE [Suspect]
     Dosage: UNK
     Route: 065
     Dates: start: 20111122
  2. CANESTEN [Concomitant]
     Dosage: UNK
     Route: 065
     Dates: start: 20110927, end: 20111007
  3. CANESTEN [Concomitant]
     Dosage: UNK
     Dates: start: 20111115, end: 20111125
  4. CANESTEN [Concomitant]
     Dosage: UNK
     Dates: start: 20111209, end: 20111219
  5. HUMALOG [Concomitant]
     Dosage: UNK
     Route: 065
     Dates: start: 20110927, end: 20111025
  6. HUMALOG [Concomitant]
     Dosage: UNK
     Dates: start: 20111115, end: 20111125
  7. PROCHLORPERAZINE [Concomitant]
     Dosage: UNK
     Route: 065
     Dates: start: 20111107, end: 20111114
  8. PROCHLORPERAZINE [Concomitant]
     Dosage: UNK
     Route: 065
     Dates: start: 20110927, end: 20111007
  9. RAMIPRIL [Concomitant]
     Dosage: UNK
     Route: 065
     Dates: start: 20111013
  10. SUDOCREM [Concomitant]
     Dosage: UNK
     Route: 065
     Dates: start: 20110927, end: 20111004
  11. TRIMETHOPRIM [Concomitant]
     Dosage: UNK
     Route: 065
     Dates: start: 20110905

REACTIONS (2)
  - Vision blurred [Unknown]
  - Dizziness [Unknown]
